FAERS Safety Report 6336645-1 (Version None)
Quarter: 2009Q3

REPORT INFORMATION
  Report Type: 
  Country: None (occurrence: None)
  Receive Date: 20090831
  Receipt Date: 20090831
  Transmission Date: 20100115
  Serious: Yes (Other)
  Sender: FDA-Public Use
  Company Number: None

PATIENT
  Age: 44 Year
  Sex: Male
  Weight: 65.7716 kg

DRUGS (2)
  1. NORVIR [Suspect]
     Indication: HIV INFECTION
     Dosage: 200MG 2 PO
     Route: 048
     Dates: start: 20071001, end: 20090822
  2. INTELENCE [Suspect]
     Indication: HIV INFECTION
     Dosage: 200MG 2 PO
     Route: 048
     Dates: start: 20081001, end: 20090822

REACTIONS (4)
  - DRUG DISPENSING ERROR [None]
  - FAT REDISTRIBUTION [None]
  - MYALGIA [None]
  - SWELLING FACE [None]
